FAERS Safety Report 7040876-5 (Version None)
Quarter: 2010Q4

REPORT INFORMATION
  Report Type: 
  Country: None (occurrence: None)
  Receive Date: 20101013
  Receipt Date: 20101008
  Transmission Date: 20110411
  Serious: No
  Sender: FDA-Public Use
  Company Number: AU-BAYER-201040342GPV

PATIENT
  Age: 37 Year
  Sex: Female

DRUGS (2)
  1. YAZ [Suspect]
     Indication: HIRSUTISM
     Route: 048
     Dates: start: 20100906, end: 20100913
  2. ARNICA CREAM [Concomitant]
     Indication: HIRSUTISM

REACTIONS (4)
  - DIZZINESS [None]
  - HYPOTENSION [None]
  - PYREXIA [None]
  - RASH [None]
